FAERS Safety Report 7342146-4 (Version None)
Quarter: 2011Q1

REPORT INFORMATION
  Report Type: 
  Country: None (occurrence: None)
  Receive Date: 20110309
  Receipt Date: 20110302
  Transmission Date: 20110831
  Serious: Yes (Hospitalization)
  Sender: FDA-Public Use
  Company Number: GB-MERCK-1102GBR00003

PATIENT
  Sex: Female

DRUGS (1)
  1. PROSCAR [Suspect]
     Route: 048

REACTIONS (4)
  - GASTROINTESTINAL DISORDER [None]
  - WRONG TECHNIQUE IN DRUG USAGE PROCESS [None]
  - ADVERSE EVENT [None]
  - DRUG ADMINISTRATION ERROR [None]
